FAERS Safety Report 8846092 (Version 2)
Quarter: 2013Q2

REPORT INFORMATION
  Report Type: Spontaneous
  Country: US (occurrence: US)
  Receive Date: 20121017
  Receipt Date: 20130510
  Transmission Date: 20140414
  Serious: Yes (Hospitalization)
  Sender: FDA-Public Use
  Company Number: PHHY2012US089206

PATIENT
  Age: 80 Year
  Sex: Male

DRUGS (2)
  1. AMIODARONE [Suspect]
     Indication: ATRIAL FIBRILLATION
     Dosage: 200 MG, QD
  2. WARFARIN [Concomitant]
     Indication: ANTICOAGULANT THERAPY

REACTIONS (6)
  - Epistaxis [Recovered/Resolved]
  - Haemoptysis [Recovered/Resolved]
  - Haematuria [Recovered/Resolved]
  - Ecchymosis [Recovered/Resolved]
  - Coagulopathy [Recovered/Resolved]
  - Coagulation factor V level increased [Recovered/Resolved]
